FAERS Safety Report 4686187-4 (Version None)
Quarter: 2005Q2

REPORT INFORMATION
  Report Type: 
  Country: None (occurrence: None)
  Receive Date: 20050609
  Receipt Date: 20050602
  Transmission Date: 20051028
  Serious: Yes (Other)
  Sender: FDA-Public Use
  Company Number: DE-BOEHRINGER INGELHEIM PHARMACEUTICALS, INC.-2005-DE-02103BY

PATIENT
  Sex: Male

DRUGS (14)
  1. KINZALKOMB [Suspect]
     Indication: HYPERTENSION
     Route: 048
     Dates: start: 20040308
  2. KINZALKOMB [Suspect]
     Route: 048
     Dates: start: 20040628
  3. KINZALKOMB [Suspect]
     Route: 048
     Dates: start: 20041004
  4. KINZALKOMB [Suspect]
     Route: 048
     Dates: start: 20041216
  5. KINZALKOMB [Suspect]
     Route: 048
     Dates: start: 20050419
  6. KINZALMONO [Suspect]
     Indication: HYPERTENSION
     Route: 048
     Dates: start: 20031216
  7. BISOBETA [Concomitant]
     Route: 048
  8. ENABETA [Concomitant]
     Route: 048
     Dates: end: 20031216
  9. HCT BETA [Concomitant]
     Route: 048
  10. ASPIRIN [Concomitant]
     Route: 065
  11. ASS RATIO [Concomitant]
     Route: 065
  12. PLAVIX [Concomitant]
     Route: 048
  13. SIOFOR [Concomitant]
     Route: 048
  14. METFORMIN [Concomitant]

REACTIONS (2)
  - CORONARY ANGIOPLASTY [None]
  - CORONARY ARTERY DISEASE [None]
